FAERS Safety Report 7050284-9 (Version None)
Quarter: 2010Q4

REPORT INFORMATION
  Report Type: 
  Country: None (occurrence: None)
  Receive Date: 20101018
  Receipt Date: 20100826
  Transmission Date: 20110411
  Serious: No
  Sender: FDA-Public Use
  Company Number: US-BAYER-201020605BCC

PATIENT
  Age: 65 Year
  Sex: Male
  Weight: 130 kg

DRUGS (7)
  1. ALEVE (CAPLET) [Suspect]
     Indication: INSOMNIA
     Route: 048
  2. ALEVE (CAPLET) [Suspect]
     Indication: INSOMNIA
     Dosage: TOTAL DAILY DOSE: 220 MG  UNIT DOSE: 220 MG
     Route: 048
     Dates: start: 20100824
  3. LISINOPRIL [Concomitant]
  4. FLOMAX [Concomitant]
  5. SIMVASTATIN [Concomitant]
  6. ALPRAZOLAM [Concomitant]
  7. SPRING VALLEY FISH OIL [Concomitant]
     Dosage: TOTAL DAILY DOSE: 2 DF

REACTIONS (2)
  - INSOMNIA [None]
  - POLLAKIURIA [None]
